FAERS Safety Report 15306983 (Version 9)
Quarter: 2019Q2

REPORT INFORMATION
  Report Type: Report from Study
  Country: CA (occurrence: CA)
  Receive Date: 20180822
  Receipt Date: 20190411
  Transmission Date: 20190711
  Serious: Yes (Other)
  Sender: FDA-Public Use
  Company Number: CA-PFIZER INC-2018332394

PATIENT
  Age: 53 Year
  Sex: Male

DRUGS (5)
  1. PANTOLOC [Suspect]
     Active Substance: PANTOPRAZOLE SODIUM
     Dosage: 40 MG, 1X/DAY
     Route: 048
     Dates: start: 20170802
  2. SALOFALK [AMINOSALICYLIC ACID] [Concomitant]
     Active Substance: AMINOSALICYLIC ACID
     Dosage: UNK UNK, QID
  3. ENTYVIO [Suspect]
     Active Substance: VEDOLIZUMAB
     Indication: COLITIS ULCERATIVE
     Dosage: 300 MG, UNK
     Route: 042
     Dates: start: 20170922
  4. CORTIMENT [HYDROCORTISONE] [Concomitant]
     Active Substance: HYDROCORTISONE
     Dosage: UNK
  5. PREDNISONE. [Concomitant]
     Active Substance: PREDNISONE
     Dosage: 5 MG, BID
     Dates: start: 20170601

REACTIONS (10)
  - Contrast media allergy [Unknown]
  - Palpitations [Recovering/Resolving]
  - Depression [Unknown]
  - Headache [Unknown]
  - Hyperhidrosis [Recovering/Resolving]
  - Bladder cancer [Unknown]
  - Catheter site infection [Recovered/Resolved]
  - Blood urine present [Unknown]
  - Diarrhoea [Recovering/Resolving]
  - Thyroid cyst [Unknown]
